FAERS Safety Report 8220803-5 (Version None)
Quarter: 2012Q1

REPORT INFORMATION
  Report Type: 
  Country: None (occurrence: None)
  Receive Date: 20120319
  Receipt Date: 20120218
  Transmission Date: 20120608
  Serious: Yes (Hospitalization, Other)
  Sender: FDA-Public Use
  Company Number: PHHY2012US013947

PATIENT
  Sex: Male
  Weight: 96.7 kg

DRUGS (13)
  1. MYFORTIC [Suspect]
     Indication: RENAL TRANSPLANT
     Dosage: 720 MG, BID
     Route: 048
     Dates: start: 20111007
  2. BENZONATATE [Concomitant]
     Dosage: 100 MG, TID
     Route: 048
     Dates: start: 20111220
  3. DOXERCALCIFEROL [Concomitant]
     Dosage: 2.5 UG, UNK
     Dates: start: 20111220
  4. AMLODIPINE [Concomitant]
     Dosage: 10 MG, UNK
     Route: 048
     Dates: start: 20110915
  5. MOXIFLOXACIN [Concomitant]
     Dosage: 400 MG, UNK
     Route: 048
     Dates: start: 20111220
  6. FAMOTIDINE [Concomitant]
     Dosage: 20 MG, TID
     Route: 048
     Dates: start: 20111019
  7. PREDNISONE [Concomitant]
     Dosage: 5 MG, UNK
     Route: 048
     Dates: start: 20110426
  8. ASPIRIN [Concomitant]
     Dosage: 81 MG, UNK
  9. SIMVASTATIN [Concomitant]
     Dosage: 5 MG, UNK
     Route: 048
     Dates: start: 20110606
  10. VITAMIN D [Concomitant]
     Dates: start: 20111220
  11. THERAGRAN-M [Concomitant]
     Route: 048
     Dates: start: 20111220
  12. METOPROLOL SUCCINATE [Concomitant]
     Dosage: 50 MG, TID
     Route: 048
     Dates: start: 20100709
  13. PROGRAF [Concomitant]
     Dosage: 2 DF, UNK
     Route: 048

REACTIONS (16)
  - ORAL CANDIDIASIS [None]
  - BRONCHITIS [None]
  - SPUTUM DISCOLOURED [None]
  - NIGHT SWEATS [None]
  - WHEEZING [None]
  - CHILLS [None]
  - COUGH [None]
  - LUNG CONSOLIDATION [None]
  - RENAL ARTERY STENOSIS [None]
  - MALAISE [None]
  - PYREXIA [None]
  - HAEMOPTYSIS [None]
  - ACID FAST BACILLI INFECTION [None]
  - ABDOMINAL PAIN LOWER [None]
  - PULMONARY CONGESTION [None]
  - VOMITING [None]
